FAERS Safety Report 12916790 (Version 1)
Quarter: 2016Q4

REPORT INFORMATION
  Report Type: Spontaneous
  Country: US (occurrence: US)
  Receive Date: 20161107
  Receipt Date: 20161107
  Transmission Date: 20170207
  Serious: No
  Sender: FDA-Public Use
  Company Number: US-JAZZ-2016-US-017274

PATIENT
  Sex: Female
  Weight: 82.86 kg

DRUGS (14)
  1. LOSARTAN AND HYDROCHLOROTHIAZIDE [Concomitant]
     Active Substance: HYDROCHLOROTHIAZIDE\LOSARTAN POTASSIUM
  2. ACETAMINOPHEN ER [Concomitant]
     Active Substance: ACETAMINOPHEN
  3. LAMOTRIGINE. [Concomitant]
     Active Substance: LAMOTRIGINE
  4. ASPIRIN. [Concomitant]
     Active Substance: ASPIRIN
  5. VENLAFAXINE HCL [Concomitant]
     Active Substance: VENLAFAXINE HYDROCHLORIDE
  6. LIPITOR [Concomitant]
     Active Substance: ATORVASTATIN CALCIUM
  7. NUVIGIL [Concomitant]
     Active Substance: ARMODAFINIL
  8. SENNOSIDES. [Concomitant]
     Active Substance: SENNOSIDES
  9. XYREM [Suspect]
     Active Substance: SODIUM OXYBATE
     Dosage: 3 G, BID
     Route: 048
     Dates: start: 2016
  10. LEVOTHYROXINE. [Concomitant]
     Active Substance: LEVOTHYROXINE
  11. LITHIUM CARBONATE ER [Concomitant]
     Active Substance: LITHIUM CARBONATE
  12. MULTIVITAMINS WITH IRON [Concomitant]
     Active Substance: IRON\VITAMINS
  13. AMLODIPINE BESYLATE. [Concomitant]
     Active Substance: AMLODIPINE BESYLATE
  14. XYREM [Suspect]
     Active Substance: SODIUM OXYBATE
     Indication: NARCOLEPSY
     Dosage: 2.25 G, BID
     Route: 048
     Dates: start: 201607, end: 2016

REACTIONS (1)
  - Initial insomnia [Not Recovered/Not Resolved]

NARRATIVE: CASE EVENT DATE: 2016
